FAERS Safety Report 23822344 (Version 1)
Quarter: 2024Q2

REPORT INFORMATION
  Report Type: Spontaneous
  Country: US (occurrence: US)
  Receive Date: 20240506
  Receipt Date: 20240506
  Transmission Date: 20240716
  Serious: Yes (Other)
  Sender: FDA-Public Use
  Company Number: US-TEVA-VS-3192620

PATIENT
  Age: 76 Year
  Sex: Female

DRUGS (2)
  1. GABAPENTIN [Suspect]
     Active Substance: GABAPENTIN
     Indication: Sciatica
     Dosage: ONE IN THE MORNING AND TWO AT NIGHT
     Route: 065
  2. GABAPENTIN [Suspect]
     Active Substance: GABAPENTIN
     Indication: Sciatica
     Dosage: ONE IN THE MORNING AND ONE AT NIGHT
     Route: 065

REACTIONS (5)
  - Blood pressure increased [Recovered/Resolved]
  - Product prescribing issue [Unknown]
  - Dizziness [Recovered/Resolved]
  - Nausea [Unknown]
  - Product use in unapproved indication [Unknown]
